FAERS Safety Report 13174592 (Version 1)
Quarter: 2017Q1

REPORT INFORMATION
  Report Type: Spontaneous
  Country: US (occurrence: US)
  Receive Date: 20170201
  Receipt Date: 20170201
  Transmission Date: 20170428
  Serious: No
  Sender: FDA-Public Use
  Company Number: US-ABBVIE-16P-163-1564021-00

PATIENT
  Sex: Female

DRUGS (2)
  1. HUMIRA [Suspect]
     Active Substance: ADALIMUMAB
     Indication: PSORIATIC ARTHROPATHY
     Route: 058
  2. LIMBREL [Concomitant]
     Active Substance: FLAVOCOXID
     Indication: PRODUCT USED FOR UNKNOWN INDICATION

REACTIONS (11)
  - Insomnia [Not Recovered/Not Resolved]
  - Fibromyalgia [Unknown]
  - Nail pitting [Unknown]
  - Psoriatic arthropathy [Unknown]
  - Pain [Unknown]
  - Pain in extremity [Unknown]
  - Injury associated with device [Unknown]
  - Onychomadesis [Unknown]
  - Injection site pain [Unknown]
  - Depression [Unknown]
  - Psoriasis [Unknown]
